FAERS Safety Report 8815041 (Version 1)
Quarter: 2012Q4

REPORT INFORMATION
  Report Type: 
  Country: US (occurrence: US)
  Receive Date: 20120928
  Receipt Date: 20120928
  Transmission Date: 20130627
  Serious: Yes (Death)
  Sender: FDA-Public Use
  Company Number: US-ROCHE-1126624

PATIENT
  Sex: Female

DRUGS (6)
  1. AVASTIN [Suspect]
     Indication: OVARIAN CANCER
     Route: 065
  2. DOXIL (UNITED STATES) [Concomitant]
  3. CARBOPLATIN [Concomitant]
  4. TAXOL [Concomitant]
  5. GLUTAMINE [Concomitant]
  6. TOPOTECAN [Concomitant]

REACTIONS (1)
  - Death [Fatal]
